FAERS Safety Report 6632104-7 (Version None)
Quarter: 2010Q1

REPORT INFORMATION
  Report Type: 
  Country: None (occurrence: None)
  Receive Date: 20100312
  Receipt Date: 20100215
  Transmission Date: 20100710
  Serious: No
  Sender: FDA-Public Use
  Company Number: JP-ROCHE-689955

PATIENT
  Age: 31 Year
  Sex: Female

DRUGS (2)
  1. TAMIFLU [Suspect]
     Indication: DRUG USE FOR UNKNOWN INDICATION
     Route: 048
     Dates: start: 20100211, end: 20100211
  2. TAMIFLU [Suspect]
     Route: 048
     Dates: start: 20100213

REACTIONS (2)
  - NO ADVERSE EVENT [None]
  - OVERDOSE [None]
